FAERS Safety Report 5175864-7 (Version None)
Quarter: 2006Q4

REPORT INFORMATION
  Report Type: 
  Country: None (occurrence: None)
  Receive Date: 20061215
  Receipt Date: 20061023
  Transmission Date: 20070319
  Serious: Yes (Death)
  Sender: FDA-Public Use
  Company Number: US-ROCHE-468659

PATIENT
  Age: 46 Year
  Sex: Female
  Weight: 61.3 kg

DRUGS (1)
  1. XELODA [Suspect]
     Route: 048
     Dates: start: 20061010, end: 20061020

REACTIONS (10)
  - ADVERSE EVENT [None]
  - BONE MARROW FAILURE [None]
  - BREAST CANCER METASTATIC [None]
  - CONDITION AGGRAVATED [None]
  - DIARRHOEA [None]
  - DIHYDROPYRIMIDINE DEHYDROGENASE DEFICIENCY [None]
  - METASTASES TO MENINGES [None]
  - MUCOSAL INFLAMMATION [None]
  - NEUTROPENIA [None]
  - THROMBOCYTOPENIA [None]
